FAERS Safety Report 15708729 (Version 5)
Quarter: 2019Q1

REPORT INFORMATION
  Report Type: Report from Study
  Country: CA (occurrence: CA)
  Receive Date: 20181211
  Receipt Date: 20190312
  Transmission Date: 20190417
  Serious: Yes (Hospitalization, Other)
  Sender: FDA-Public Use
  Company Number: CA-GLAXOSMITHKLINE-CA2018GSK222040

PATIENT
  Age: 62 Year
  Sex: Female

DRUGS (1)
  1. MEPOLIZUMAB [Suspect]
     Active Substance: MEPOLIZUMAB
     Indication: ASTHMA
     Dosage: 100 MG, CYC
     Route: 042

REACTIONS (9)
  - Hypersensitivity [Unknown]
  - Condition aggravated [Unknown]
  - Headache [Unknown]
  - Drug ineffective [Unknown]
  - Muscle spasms [Unknown]
  - Pneumonia [Unknown]
  - Asthma [Not Recovered/Not Resolved]
  - Infection [Unknown]
  - Cough [Recovering/Resolving]

NARRATIVE: CASE EVENT DATE: 20181204
